FAERS Safety Report 14911650 (Version 1)
Quarter: 2018Q2

REPORT INFORMATION
  Report Type: Spontaneous
  Country: US (occurrence: US)
  Receive Date: 20180518
  Receipt Date: 20180518
  Transmission Date: 20180711
  Serious: No
  Sender: FDA-Public Use
  Company Number: US-ASTRAZENECA-2018SE54822

PATIENT
  Age: 751 Month
  Sex: Female
  Weight: 68 kg

DRUGS (5)
  1. XGEVA [Concomitant]
     Active Substance: DENOSUMAB
     Indication: BREAST CANCER METASTATIC
     Dates: start: 201606
  2. RELAFAN [Concomitant]
     Indication: ANTIINFLAMMATORY THERAPY
     Route: 048
  3. RELAFAN [Concomitant]
     Indication: PAIN
     Route: 048
  4. FASLODEX [Suspect]
     Active Substance: FULVESTRANT
     Indication: BREAST CANCER METASTATIC
     Route: 030
     Dates: start: 201512
  5. IBRANCE [Suspect]
     Active Substance: PALBOCICLIB
     Indication: BREAST CANCER METASTATIC
     Dosage: 125 MG 21 DAYS ON AND HOLD FOR 7 DAYS
     Route: 048
     Dates: start: 201512

REACTIONS (5)
  - Injection site pain [Not Recovered/Not Resolved]
  - Gait disturbance [Not Recovered/Not Resolved]
  - Injection site mass [Not Recovered/Not Resolved]
  - Pain in extremity [Not Recovered/Not Resolved]
  - Muscular weakness [Not Recovered/Not Resolved]

NARRATIVE: CASE EVENT DATE: 201802
